FAERS Safety Report 7518116-X (Version None)
Quarter: 2011Q2

REPORT INFORMATION
  Report Type: 
  Country: None (occurrence: None)
  Receive Date: 20110602
  Receipt Date: 20110527
  Transmission Date: 20111010
  Serious: Yes (Other)
  Sender: FDA-Public Use
  Company Number: US-AMGEN-USASP2011026581

PATIENT
  Age: 30 Year
  Sex: Female

DRUGS (8)
  1. PROMACTA [Concomitant]
     Dosage: UNK
     Dates: start: 20100816
  2. CORTICOSTEROIDS [Concomitant]
  3. RITUXIMAB [Concomitant]
  4. PLAQUENIL [Concomitant]
     Dosage: UNK
  5. IVIGLOB-EX [Concomitant]
  6. NPLATE [Suspect]
     Indication: IDIOPATHIC THROMBOCYTOPENIC PURPURA
     Dosage: 7.1 A?G/KG, UNK
     Dates: start: 20090803, end: 20100924
  7. VITAMIN D [Concomitant]
  8. WINRHO [Concomitant]

REACTIONS (4)
  - PLATELET COUNT ABNORMAL [None]
  - PLATELET COUNT DECREASED [None]
  - THROMBOCYTOSIS [None]
  - THROMBOCYTOPENIA [None]
